FAERS Safety Report 8762457 (Version 2)
Quarter: 2012Q4

REPORT INFORMATION
  Report Type: 
  Country: JP (occurrence: JP)
  Receive Date: 20120830
  Receipt Date: 20120830
  Transmission Date: 20130627
  Serious: Yes (Life-Threatening)
  Sender: FDA-Public Use
  Company Number: JP-009507513-2012SP018372

PATIENT

DRUGS (3)
  1. PEGINTRON [Suspect]
     Indication: HEPATITIS C
     Dosage: 100 ?g, QW
     Route: 058
     Dates: start: 20111107, end: 20111121
  2. PEGINTRON [Suspect]
     Dosage: 60 ?g, QW
     Route: 058
     Dates: start: 20111205, end: 20120321
  3. REBETOL CAPSULES 200MG [Suspect]
     Indication: HEPATITIS C
     Dosage: 200 mg, qd
     Route: 048
     Dates: start: 201111

REACTIONS (3)
  - Basedow^s disease [Not Recovered/Not Resolved]
  - Arrhythmia [None]
  - Pleural effusion [None]
